FAERS Safety Report 15689860 (Version 2)
Quarter: 2019Q2

REPORT INFORMATION
  Report Type: Spontaneous
  Country: CZ (occurrence: CZ)
  Receive Date: 20181205
  Receipt Date: 20190411
  Transmission Date: 20190711
  Serious: Yes (Disabling, Other)
  Sender: FDA-Public Use
  Company Number: CZ-SHIRE-CZ201845347

PATIENT

DRUGS (29)
  1. ICLUSIG [Suspect]
     Active Substance: PONATINIB
     Dosage: 15 MG, 1X/DAY:QD
     Route: 048
     Dates: start: 201609
  2. BICNU [Concomitant]
     Active Substance: CARMUSTINE
     Indication: B-CELL TYPE ACUTE LEUKAEMIA
  3. METHYLPREDNISOLON [Concomitant]
     Active Substance: METHYLPREDNISOLONE
     Indication: ACUTE GRAFT VERSUS HOST DISEASE
  4. REVATIO [Concomitant]
     Active Substance: SILDENAFIL CITRATE
     Indication: PULMONARY HYPERTENSION
     Route: 065
  5. CYCLOSPORIN [Concomitant]
     Active Substance: CYCLOSPORINE
     Indication: B-CELL TYPE ACUTE LEUKAEMIA
  6. DASATINIB. [Concomitant]
     Active Substance: DASATINIB
     Indication: B-CELL TYPE ACUTE LEUKAEMIA
  7. ETOPOSIDE. [Concomitant]
     Active Substance: ETOPOSIDE
     Indication: B-CELL TYPE ACUTE LEUKAEMIA
  8. AUGMENTIN [Concomitant]
     Active Substance: AMOXICILLIN\CLAVULANATE POTASSIUM
     Indication: OTITIS MEDIA CHRONIC
     Dosage: UNK
     Dates: start: 20180831, end: 20180901
  9. ANTITHYMOCYTE IMMUNOGLOBULIN [Concomitant]
     Active Substance: THYMOCYTE IMMUNE GLOBULIN NOS
     Indication: B-CELL TYPE ACUTE LEUKAEMIA
  10. DEXAMED [Concomitant]
     Indication: B-CELL TYPE ACUTE LEUKAEMIA
  11. DASATINIB. [Concomitant]
     Active Substance: DASATINIB
     Indication: PULMONARY HYPERTENSION
  12. ARA-C [Concomitant]
     Active Substance: CYTARABINE
     Indication: B-CELL TYPE ACUTE LEUKAEMIA
  13. NILOTINIB [Concomitant]
     Active Substance: NILOTINIB
     Indication: B-CELL TYPE ACUTE LEUKAEMIA
  14. BUDESONID [Concomitant]
     Active Substance: BUDESONIDE
     Indication: ACUTE GRAFT VERSUS HOST DISEASE IN INTESTINE
  15. ICLUSIG [Suspect]
     Active Substance: PONATINIB
     Indication: B-CELL TYPE ACUTE LEUKAEMIA
     Dosage: 30 MG, QD
     Route: 048
     Dates: start: 20160815, end: 201609
  16. REVATIO [Concomitant]
     Active Substance: SILDENAFIL CITRATE
     Dosage: 20 MG, TID
     Route: 048
     Dates: start: 20150630
  17. CYCLOPHOSPHAMIDE. [Concomitant]
     Active Substance: CYCLOPHOSPHAMIDE
     Indication: B-CELL TYPE ACUTE LEUKAEMIA
  18. METHOTREXATE. [Concomitant]
     Active Substance: METHOTREXATE
     Indication: B-CELL TYPE ACUTE LEUKAEMIA
  19. DASATINIB. [Concomitant]
     Active Substance: DASATINIB
     Indication: DYSPNOEA
  20. KIOVIG [Suspect]
     Active Substance: HUMAN IMMUNOGLOBULIN G
     Indication: B-CELL TYPE ACUTE LEUKAEMIA
     Dosage: UNK
     Route: 065
     Dates: start: 2017
  21. DASATINIB. [Concomitant]
     Active Substance: DASATINIB
     Indication: ACUTE LYMPHOCYTIC LEUKAEMIA RECURRENT
  22. DASATINIB. [Concomitant]
     Active Substance: DASATINIB
     Indication: ACUTE LYMPHOCYTIC LEUKAEMIA
  23. IFOSFAMIDE. [Concomitant]
     Active Substance: IFOSFAMIDE
     Indication: B-CELL TYPE ACUTE LEUKAEMIA
  24. THIOTEPA. [Concomitant]
     Active Substance: THIOTEPA
     Indication: B-CELL TYPE ACUTE LEUKAEMIA
  25. MYCOPHENOLATE MOFETIL. [Concomitant]
     Active Substance: MYCOPHENOLATE MOFETIL
     Indication: B-CELL TYPE ACUTE LEUKAEMIA
  26. IMATINIB. [Concomitant]
     Active Substance: IMATINIB MESYLATE
     Indication: B-CELL TYPE ACUTE LEUKAEMIA
  27. ALEXAN [Concomitant]
     Indication: B-CELL TYPE ACUTE LEUKAEMIA
  28. ICLUSIG [Suspect]
     Active Substance: PONATINIB
     Dosage: 30 MG, 1X/DAY:QD
     Route: 048
     Dates: end: 20180912
  29. DEXAMETHASONE. [Concomitant]
     Active Substance: DEXAMETHASONE
     Indication: B-CELL TYPE ACUTE LEUKAEMIA

REACTIONS (16)
  - Cerebral ischaemia [Not Recovered/Not Resolved]
  - Drug hypersensitivity [Unknown]
  - Incorrect dose administered [Unknown]
  - Neuromuscular toxicity [Unknown]
  - Central nervous system leukaemia [Unknown]
  - Paraplegia [Recovered/Resolved]
  - Pyrexia [Unknown]
  - Blindness unilateral [Unknown]
  - Meningitis pneumococcal [Unknown]
  - Hemiparaesthesia [Unknown]
  - Peripheral sensory neuropathy [Recovered/Resolved]
  - Aphasia [Not Recovered/Not Resolved]
  - Pneumonia [Unknown]
  - Hypotension [Unknown]
  - Restlessness [Unknown]
  - Headache [Unknown]

NARRATIVE: CASE EVENT DATE: 20161214
